FAERS Safety Report 13076643 (Version 1)
Quarter: 2016Q4

REPORT INFORMATION
  Report Type: Spontaneous
  Country: BR (occurrence: BR)
  Receive Date: 20161230
  Receipt Date: 20161230
  Transmission Date: 20170207
  Serious: Yes (Hospitalization)
  Sender: FDA-Public Use
  Company Number: BR-SA-2016SA232442

PATIENT
  Sex: Female
  Weight: 82 kg

DRUGS (3)
  1. LANTUS [Suspect]
     Active Substance: INSULIN GLARGINE
     Indication: DIABETES MELLITUS
     Dosage: INTRADERMAL: ARM AND BEHIND THE GLUTEUS
     Route: 023
     Dates: start: 2006
  2. AUTOPEN [Concomitant]
     Dates: end: 20161219
  3. NOVORAPID [Concomitant]
     Active Substance: INSULIN ASPART
     Indication: DIABETES MELLITUS
     Dosage: 6IU IN BREAKFAST, 6IU IN LUNCH AND 7IU AT DINNER
     Route: 023
     Dates: start: 2006

REACTIONS (4)
  - Hypoglycaemia [Unknown]
  - Exposure during pregnancy [Unknown]
  - Diabetic complication [Unknown]
  - Product use issue [Unknown]
